FAERS Safety Report 18628675 (Version 1)
Quarter: 2020Q4

REPORT INFORMATION
  Report Type: Spontaneous
  Country: CN (occurrence: CN)
  Receive Date: 20201217
  Receipt Date: 20201217
  Transmission Date: 20210114
  Serious: Yes (Other)
  Sender: FDA-Public Use
  Company Number: CN-PFIZER INC-2020494425

PATIENT
  Age: 84 Year
  Sex: Male
  Weight: 50 kg

DRUGS (4)
  1. SPIRONOLACTONE. [Concomitant]
     Active Substance: SPIRONOLACTONE
     Indication: DIURETIC THERAPY
     Dosage: 40 MG, 1X/DAY
     Route: 048
     Dates: start: 20201204, end: 20201208
  2. METHYLPREDNISOLONE SODIUM SUCCINATE. [Suspect]
     Active Substance: METHYLPREDNISOLONE SODIUM SUCCINATE
     Indication: ASTHMA
     Dosage: 40 MG, 1X/DAY
     Route: 041
     Dates: start: 20201204, end: 20201207
  3. SODIUM CHLORIDE. [Suspect]
     Active Substance: SODIUM CHLORIDE
     Indication: VEHICLE SOLUTION USE
     Dosage: 100 ML, 1X/DAY
     Route: 041
     Dates: start: 20201204, end: 20201207
  4. FUROSEMIDE. [Suspect]
     Active Substance: FUROSEMIDE
     Indication: DIURETIC THERAPY
     Dosage: 20 MG, 1X/DAY
     Route: 048
     Dates: start: 20201204, end: 20201208

REACTIONS (1)
  - Blood potassium decreased [Recovered/Resolved]

NARRATIVE: CASE EVENT DATE: 20201209
